FAERS Safety Report 5377102-9 (Version None)
Quarter: 2007Q2

REPORT INFORMATION
  Report Type: 
  Country: None (occurrence: None)
  Receive Date: 20070628
  Receipt Date: 20070628
  Transmission Date: 20071010
  Serious: Yes (Other)
  Sender: FDA-Public Use
  Company Number: None

PATIENT
  Age: 20 Year
  Sex: Male

DRUGS (3)
  1. CORICIDIN [Suspect]
     Indication: EUPHORIC MOOD
  2. ROBITUSSIN MAXIMUM STRENGTH COUGH SYRUP [Suspect]
     Indication: EUPHORIC MOOD
  3. ROBITUSSIN MAXIMUM STRENGTH COUGH / 00048102/ [Concomitant]

REACTIONS (7)
  - DRUG ABUSER [None]
  - DYSARTHRIA [None]
  - FALL [None]
  - IMPAIRED DRIVING ABILITY [None]
  - LETHARGY [None]
  - MYDRIASIS [None]
  - OFF LABEL USE [None]
